FAERS Safety Report 15737954 (Version 1)
Quarter: 2018Q4

REPORT INFORMATION
  Report Type: Spontaneous
  Country: GB (occurrence: GB)
  Receive Date: 20181219
  Receipt Date: 20181219
  Transmission Date: 20190205
  Serious: Yes (Other)
  Sender: FDA-Public Use
  Company Number: GB-TEVA-2018-GB-987602

PATIENT
  Age: 40 Year
  Sex: Female

DRUGS (1)
  1. FEXOFENADINE HYDROCHLORIDE. [Suspect]
     Active Substance: FEXOFENADINE HYDROCHLORIDE
     Indication: RHINITIS ALLERGIC
     Dosage: I WENT TO A ALLERGY SPECIALIST AND THEN ASKED ME TO INCREASE THIS MEDICINE FROM 1 TO 4. I DID SLOWLY
     Route: 065
     Dates: start: 20160101

REACTIONS (1)
  - Gastritis [Recovering/Resolving]
